FAERS Safety Report 6370915-6 (Version None)
Quarter: 2009Q3

REPORT INFORMATION
  Report Type: 
  Country: None (occurrence: None)
  Receive Date: 20090923
  Receipt Date: 20071004
  Transmission Date: 20100115
  Serious: Yes (Other)
  Sender: FDA-Public Use
  Company Number: US-ASTRAZENECA-2006UW23360

PATIENT
  Age: 17515 Day
  Sex: Male
  Weight: 97.1 kg

DRUGS (13)
  1. SEROQUEL [Suspect]
     Route: 048
  2. HALDOL [Concomitant]
  3. THORAZINE [Concomitant]
  4. ZYPREXA [Concomitant]
  5. ABILIFY [Concomitant]
  6. BENZTROPINE MESYLATE [Concomitant]
  7. DEPAKOTE ER [Concomitant]
  8. HYDROXYPAM [Concomitant]
  9. LIPITOR [Concomitant]
  10. LORAZEPAM [Concomitant]
  11. METFORMIN HCL [Concomitant]
  12. HALOPERIDOL [Concomitant]
  13. PROPRANOLOL [Concomitant]

REACTIONS (2)
  - PANCREATITIS [None]
  - TYPE 2 DIABETES MELLITUS [None]
